FAERS Safety Report 17632359 (Version 1)
Quarter: 2020Q2

REPORT INFORMATION
  Report Type: Spontaneous
  Country: US (occurrence: US)
  Receive Date: 20200406
  Receipt Date: 20200406
  Transmission Date: 20200713
  Serious: No
  Sender: FDA-Public Use
  Company Number: US-AMGEN-USASP2020052860

PATIENT

DRUGS (2)
  1. GLOBULIN [Concomitant]
     Indication: IMMUNE TOLERANCE INDUCTION
     Dosage: 2 GRAM PER KILOGRAM
  2. CARFILZOMIB [Suspect]
     Active Substance: CARFILZOMIB
     Indication: IMMUNE TOLERANCE INDUCTION
     Dosage: 20 MILLIGRAM/SQ. METER ON DAYS 1, 2, 8, 9, 15, AND 16
     Route: 065

REACTIONS (1)
  - Off label use [Unknown]
